FAERS Safety Report 23027267 (Version 1)
Quarter: 2023Q4

REPORT INFORMATION
  Report Type: Spontaneous
  Country: US (occurrence: None)
  Receive Date: 20231003
  Receipt Date: 20231003
  Transmission Date: 20240110
  Serious: No
  Sender: FDA-Public Use
  Company Number: None

PATIENT
  Age: 67 Year
  Sex: Male
  Weight: 66.6 kg

DRUGS (10)
  1. SODIUM FLUORIDE 5000 PPM SPEARMINT [Suspect]
     Active Substance: SODIUM FLUORIDE
     Indication: Dental disorder prophylaxis
     Dosage: OTHER STRENGTH : PPM;?OTHER QUANTITY : 1 UP TO 1/2 INCH;?FREQUENCY : TWICE A DAY;?
     Route: 048
     Dates: start: 20230927, end: 20231001
  2. ALBUTEROL [Concomitant]
     Active Substance: ALBUTEROL
  3. Waxela [Concomitant]
  4. FLUOCINONIDE [Concomitant]
     Active Substance: FLUOCINONIDE
  5. BETAMETHASONE [Concomitant]
     Active Substance: BETAMETHASONE
  6. TRIAMCINOLONE [Concomitant]
     Active Substance: TRIAMCINOLONE
  7. VITAMIN A [Concomitant]
     Active Substance: VITAMIN A
  8. VITAMIN C [Concomitant]
     Active Substance: ASCORBIC ACID
  9. Spinach Leaf Extract [Concomitant]
  10. MAGOX [Concomitant]

REACTIONS (4)
  - Throat tightness [None]
  - Throat irritation [None]
  - Mouth swelling [None]
  - Therapy cessation [None]

NARRATIVE: CASE EVENT DATE: 20230927
